FAERS Safety Report 22366093 (Version 1)
Quarter: 2023Q2

REPORT INFORMATION
  Report Type: Spontaneous
  Country: KR (occurrence: KR)
  Receive Date: 20230525
  Receipt Date: 20230525
  Transmission Date: 20230722
  Serious: Yes (Other)
  Sender: FDA-Public Use
  Company Number: KR-MYLANLABS-2023M1052991

PATIENT
  Sex: Female

DRUGS (1)
  1. CELEBREX [Suspect]
     Active Substance: CELECOXIB
     Indication: Rheumatoid arthritis
     Dosage: 100 MILLIGRAM, QD
     Route: 048
     Dates: start: 20180131

REACTIONS (1)
  - Azotaemia [Recovered/Resolved]

NARRATIVE: CASE EVENT DATE: 20180223
